FAERS Safety Report 6533822-1 (Version None)
Quarter: 2010Q1

REPORT INFORMATION
  Report Type: 
  Country: None (occurrence: None)
  Receive Date: 20100111
  Receipt Date: 20091208
  Transmission Date: 20100710
  Serious: No
  Sender: FDA-Public Use
  Company Number: US-ABBOTT-09P-163-0613907-00

PATIENT
  Age: 51 Year
  Sex: Male

DRUGS (6)
  1. VICODIN [Suspect]
     Indication: PAIN
     Dosage: 5/500MG TABLET
     Route: 048
     Dates: start: 20080101
  2. VICODIN [Suspect]
     Dosage: 10/325MG TABLET
     Route: 048
     Dates: start: 20091201
  3. CLONIDINE [Concomitant]
     Indication: HYPERTENSION
  4. TRIAMTERENE [Concomitant]
     Indication: HYPERTENSION
  5. TRIAMTERENE [Concomitant]
     Indication: RENAL DISORDER
  6. AMLODIPINE [Concomitant]
     Indication: HYPERTENSION

REACTIONS (2)
  - CONSTIPATION [None]
  - DRUG EFFECT DECREASED [None]
